FAERS Safety Report 11921929 (Version 1)
Quarter: 2016Q1

REPORT INFORMATION
  Report Type: Not Available
  Country: CH (occurrence: CH)
  Receive Date: 20160115
  Receipt Date: 20160115
  Transmission Date: 20160526
  Serious: Yes (Other)
  Sender: FDA-Public Use
  Company Number: CH-ANIPHARMA-2016-CH-000001

PATIENT
  Age: 15 Year
  Sex: Female

DRUGS (2)
  1. IBUPROFEN (NON-SPECIFIC) [Suspect]
     Active Substance: IBUPROFEN
     Dosage: 6000 MG
     Route: 048
  2. TOLPERISONE [Suspect]
     Active Substance: TOLPERISONE
     Dosage: 6000 MG
     Route: 048

REACTIONS (3)
  - Pneumonia aspiration [Unknown]
  - Overdose [Unknown]
  - Seizure [Unknown]
